FAERS Safety Report 5559150-9 (Version None)
Quarter: 2007Q4

REPORT INFORMATION
  Report Type: 
  Country: None (occurrence: None)
  Receive Date: 20071214
  Receipt Date: 20070920
  Transmission Date: 20080405
  Serious: No
  Sender: FDA-Public Use
  Company Number: US-ABBOTT-07P-163-0417906-00

PATIENT
  Sex: Female
  Weight: 127 kg

DRUGS (8)
  1. HUMIRA [Suspect]
     Indication: RHEUMATOID ARTHRITIS
     Route: 058
     Dates: start: 20031201
  2. PREDNISONE [Concomitant]
     Indication: DRUG USE FOR UNKNOWN INDICATION
  3. METHOTREXATE [Concomitant]
     Indication: DRUG USE FOR UNKNOWN INDICATION
  4. SULFASALAZINE [Concomitant]
     Indication: DRUG USE FOR UNKNOWN INDICATION
  5. M.V.I. [Concomitant]
     Indication: DRUG USE FOR UNKNOWN INDICATION
  6. FOLIC ACID [Concomitant]
     Indication: DRUG USE FOR UNKNOWN INDICATION
  7. HYDROCODONE BITARTRATE [Concomitant]
     Indication: DRUG USE FOR UNKNOWN INDICATION
  8. VITACAL [Concomitant]
     Indication: DRUG USE FOR UNKNOWN INDICATION

REACTIONS (2)
  - NASOPHARYNGITIS [None]
  - SKIN LACERATION [None]
